FAERS Safety Report 4873451-9 (Version None)
Quarter: 2005Q4

REPORT INFORMATION
  Report Type: 
  Country: None (occurrence: None)
  Receive Date: 20051201
  Receipt Date: 20050820
  Transmission Date: 20060501
  Serious: No
  Sender: FDA-Public Use
  Company Number: 2005PV001361

PATIENT
  Age: 58 Year
  Sex: Female
  Weight: 78.0187 kg

DRUGS (10)
  1. BYETTA [Suspect]
     Indication: DIABETES MELLITUS NON-INSULIN-DEPENDENT
     Dosage: 10 MCG;BID;SC
     Route: 058
     Dates: start: 20050818
  2. METFORMIN [Concomitant]
  3. PRENATAL VITAMINS [Concomitant]
  4. LIPITOR [Concomitant]
  5. CALCIUM GLUCONATE [Concomitant]
  6. ZOLOFT [Concomitant]
  7. BECONASE [Concomitant]
  8. LISINOPRIL W/HYDROCHLOROTHIAZIDE [Concomitant]
  9. ADVAIR DISKUS 100/50 [Concomitant]
  10. PLAVIX [Concomitant]

REACTIONS (11)
  - ABDOMINAL DISTENSION [None]
  - ANXIETY [None]
  - DIARRHOEA [None]
  - DRUG EFFECT DECREASED [None]
  - DYSGEUSIA [None]
  - EARLY SATIETY [None]
  - HYPERSOMNIA [None]
  - MEDICATION ERROR [None]
  - NAUSEA [None]
  - POLLAKIURIA [None]
  - VOMITING [None]
